FAERS Safety Report 20213062 (Version 1)
Quarter: 2021Q4

REPORT INFORMATION
  Report Type: Spontaneous
  Country: US (occurrence: None)
  Receive Date: 20211221
  Receipt Date: 20211221
  Transmission Date: 20220303
  Serious: Yes (Other)
  Sender: FDA-Public Use
  Company Number: None

PATIENT
  Age: 37 Year
  Sex: Female

DRUGS (1)
  1. LAMOTRIGINE [Suspect]
     Active Substance: LAMOTRIGINE
     Dosage: FREQUENCY : TWICE A DAY;?
     Route: 048
     Dates: start: 20130328, end: 20170722

REACTIONS (2)
  - Mania [None]
  - Depression [None]

NARRATIVE: CASE EVENT DATE: 20170722
